FAERS Safety Report 7271060-8 (Version None)
Quarter: 2011Q1

REPORT INFORMATION
  Report Type: 
  Country: None (occurrence: None)
  Receive Date: 20110202
  Receipt Date: 20110127
  Transmission Date: 20110831
  Serious: Yes (Hospitalization, Other)
  Sender: FDA-Public Use
  Company Number: US-PFIZER INC-2011020165

PATIENT
  Sex: Female

DRUGS (1)
  1. EFFEXOR [Suspect]
     Indication: BIPOLAR DISORDER
     Dosage: UNK
     Route: 064

REACTIONS (3)
  - DRUG EXPOSURE DURING PREGNANCY [None]
  - DYSPNOEA [None]
  - MATERNAL DRUGS AFFECTING FOETUS [None]
